FAERS Safety Report 8800164 (Version 1)
Quarter: 2012Q4

REPORT INFORMATION
  Report Type: 
  Country: US (occurrence: US)
  Receive Date: 20120921
  Receipt Date: 20120921
  Transmission Date: 20130627
  Serious: No
  Sender: FDA-Public Use
  Company Number: US-TEVA-360494USA

PATIENT
  Age: 24 None
  Sex: Female
  Weight: 63.56 kg

DRUGS (5)
  1. PLAN B ONE-STEP [Suspect]
     Indication: POST COITAL CONTRACEPTION
     Dosage: 1.5 Milligram Daily;
     Route: 048
     Dates: start: 201204, end: 201204
  2. PLAN B ONE-STEP [Suspect]
     Dosage: 1.5 Milligram Daily;
     Route: 048
     Dates: start: 201204, end: 201204
  3. PLAN B ONE-STEP [Suspect]
     Dosage: 1.5 Milligram Daily;
     Route: 048
     Dates: start: 201205, end: 201205
  4. PLAN B ONE-STEP [Suspect]
     Dosage: 1.5 Milligram Daily;
     Route: 048
     Dates: start: 20120514, end: 20120514
  5. XANAX [Concomitant]
     Indication: ANXIETY

REACTIONS (3)
  - Menstruation irregular [Recovered/Resolved]
  - Drug ineffective [Unknown]
  - Pregnancy [Unknown]
